FAERS Safety Report 8239115-9 (Version None)
Quarter: 2012Q1

REPORT INFORMATION
  Report Type: 
  Country: None (occurrence: None)
  Receive Date: 20120328
  Receipt Date: 20120314
  Transmission Date: 20120608
  Serious: Yes (Death, Hospitalization)
  Sender: FDA-Public Use
  Company Number: JO-AMGEN-JORSP2012019155

PATIENT
  Sex: Male

DRUGS (5)
  1. NEULASTIM [Suspect]
     Indication: FEBRILE NEUTROPENIA
     Dosage: 6 MG, PRN
     Route: 058
     Dates: start: 20120229, end: 20120229
  2. FLUDARABINE PHOSPHATE [Concomitant]
     Indication: ACUTE MYELOID LEUKAEMIA
  3. NEUPOGEN [Concomitant]
     Indication: ACUTE MYELOID LEUKAEMIA
  4. ANTINEOPLASTIC AGENTS [Concomitant]
     Indication: ACUTE MYELOID LEUKAEMIA
  5. CYTARABINE [Concomitant]
     Indication: ACUTE MYELOID LEUKAEMIA

REACTIONS (2)
  - BONE PAIN [None]
  - RESPIRATORY DISTRESS [None]
